FAERS Safety Report 14334953 (Version 2)
Quarter: 2018Q1

REPORT INFORMATION
  Report Type: Spontaneous
  Country: FR (occurrence: FR)
  Receive Date: 20171229
  Receipt Date: 20180101
  Transmission Date: 20180509
  Serious: Yes (Other)
  Sender: FDA-Public Use
  Company Number: FR-CONCORDIA PHARMACEUTICALS INC.-GSH201712-006704

PATIENT
  Age: 67 Year
  Sex: Female
  Weight: 76 kg

DRUGS (4)
  1. PLAQUENIL [Suspect]
     Active Substance: HYDROXYCHLOROQUINE SULFATE
     Indication: CONNECTIVE TISSUE DISORDER
     Route: 048
     Dates: start: 201606
  2. CACIT VITAMINE D3 [Suspect]
     Active Substance: CALCIUM CARBONATE\CHOLECALCIFEROL
     Indication: CONNECTIVE TISSUE DISORDER
     Route: 048
     Dates: start: 201606
  3. ARAVA [Suspect]
     Active Substance: LEFLUNOMIDE
     Indication: CONNECTIVE TISSUE DISORDER
     Route: 048
     Dates: start: 201609
  4. CORTANCYL [Suspect]
     Active Substance: PREDNISONE
     Indication: CONNECTIVE TISSUE DISORDER
     Route: 048
     Dates: start: 201606

REACTIONS (1)
  - Peripheral sensory neuropathy [Not Recovered/Not Resolved]

NARRATIVE: CASE EVENT DATE: 201704
